FAERS Safety Report 9655186 (Version 1)
Quarter: 2013Q4

REPORT INFORMATION
  Report Type: Spontaneous
  Country: US (occurrence: US)
  Receive Date: 20131029
  Receipt Date: 20131029
  Transmission Date: 20140711
  Serious: No
  Sender: FDA-Public Use
  Company Number: US-PURDUE-USA-2012-0086269

PATIENT
  Sex: Female

DRUGS (2)
  1. OXYCONTIN (NDA 22-272) [Suspect]
     Indication: ANALGESIC THERAPY
     Dosage: 15 MG, Q12H
  2. OXYCONTIN (NDA 22-272) [Suspect]
     Dosage: 10 MG, Q12H

REACTIONS (4)
  - Inadequate analgesia [Unknown]
  - Drug effect increased [Unknown]
  - Fatigue [Unknown]
  - Unevaluable event [Unknown]
